FAERS Safety Report 8539056 (Version 2)
Quarter: 2012Q4

REPORT INFORMATION
  Report Type: 
  Country: DK (occurrence: DK)
  Receive Date: 20120501
  Receipt Date: 20121116
  Transmission Date: 20130627
  Serious: Yes (Other)
  Sender: FDA-Public Use
  Company Number: DK-PFIZER INC-2012105576

PATIENT
  Age: 17 Year
  Sex: Female

DRUGS (3)
  1. ZELDOX [Suspect]
     Dosage: UNK
  2. ZYPREXA [Suspect]
     Dosage: UNK
  3. LEPONEX [Suspect]
     Dosage: UNK

REACTIONS (3)
  - Petit mal epilepsy [Unknown]
  - Syncope [Unknown]
  - Electroencephalogram abnormal [Unknown]
